FAERS Safety Report 4312249-7 (Version None)
Quarter: 2004Q1

REPORT INFORMATION
  Report Type: 
  Country: None (occurrence: None)
  Receive Date: 20040303
  Receipt Date: 19971006
  Transmission Date: 20041129
  Serious: Yes (Other)
  Sender: FDA-Public Use
  Company Number: CL-199600011

PATIENT
  Age: 53 Year
  Sex: Male
  Weight: 107 kg

DRUGS (10)
  1. INFLIXIMAB (INFLIXIMAB, RECOMBINANT) LYOPHILIZED POWDER [Suspect]
     Indication: RHEUMATOID ARTHRITIS
     Dosage: SEE IMAGE
     Route: 042
     Dates: start: 19950623
  2. INFLIXIMAB (INFLIXIMAB, RECOMBINANT) LYOPHILIZED POWDER [Suspect]
     Indication: RHEUMATOID ARTHRITIS
     Dosage: SEE IMAGE
     Route: 042
     Dates: start: 19950915
  3. METHOTREXATE [Concomitant]
  4. FOLIC ACID [Concomitant]
  5. PREDNISONE [Concomitant]
  6. ORUDIS [Concomitant]
  7. AMITRIPTYLINE HCL [Concomitant]
  8. TYLENOL W/ CODEINE NO. 3 [Concomitant]
  9. VASOTEC [Concomitant]
  10. MAXZIDE [Concomitant]

REACTIONS (1)
  - SUPERFICIAL SPREADING MELANOMA STAGE UNSPECIFIED [None]
